FAERS Safety Report 17142519 (Version 2)
Quarter: 2019Q4

REPORT INFORMATION
  Report Type: Report from Study
  Country: US (occurrence: US)
  Receive Date: 20191211
  Receipt Date: 20191226
  Transmission Date: 20200122
  Serious: Yes (Other)
  Sender: FDA-Public Use
  Company Number: US-ACTELION-A-NJ2016-139336

PATIENT
  Sex: Female
  Weight: 89.8 kg

DRUGS (4)
  1. OPSUMIT [Suspect]
     Active Substance: MACITENTAN
     Indication: PULMONARY HYPERTENSION
     Dosage: 10 MG, QD
     Route: 048
     Dates: start: 20160413
  2. ADEMPAS [Concomitant]
     Active Substance: RIOCIGUAT
  3. ISOSORBIDE. [Interacting]
     Active Substance: ISOSORBIDE
     Indication: PRODUCT USED FOR UNKNOWN INDICATION
     Route: 065
  4. REVATIO [Interacting]
     Active Substance: SILDENAFIL CITRATE
     Indication: PRODUCT USED FOR UNKNOWN INDICATION
     Route: 065

REACTIONS (11)
  - Palpitations [Unknown]
  - Limb injury [Unknown]
  - Fluid retention [Unknown]
  - Diarrhoea [Unknown]
  - Peripheral swelling [Unknown]
  - Drug interaction [Unknown]
  - Diabetic neuropathy [Unknown]
  - Nasal congestion [Unknown]
  - Weight increased [Unknown]
  - Pain in extremity [Unknown]
  - Rehabilitation therapy [Unknown]
